FAERS Safety Report 14452763 (Version 2)
Quarter: 2018Q1

REPORT INFORMATION
  Report Type: Report from Study
  Country: DE (occurrence: DE)
  Receive Date: 20180129
  Receipt Date: 20180212
  Transmission Date: 20180509
  Serious: Yes (Other)
  Sender: FDA-Public Use
  Company Number: DE-ROCHE-2061298

PATIENT
  Age: 75 Year
  Sex: Male
  Weight: 88 kg

DRUGS (8)
  1. VEMURAFENIB. [Suspect]
     Active Substance: VEMURAFENIB
     Indication: MALIGNANT MELANOMA
     Dosage: ON 20/DEC/2017, THE PATIENT RECEIVED MOST RECENT DOSE OF VEMURAFENIB AT 3 TABLETS.?BLINDED DOSE
     Route: 048
     Dates: start: 20171109
  2. COBIMETINIB. [Suspect]
     Active Substance: COBIMETINIB
     Indication: MALIGNANT MELANOMA
     Dosage: ON 20/DEC/2017, THE PATIENT RECEIVED MOST RECENT DOSE OF COBIMETINIB AT 40 MG.?DAYS 1-21 OF EACH 28-
     Route: 048
     Dates: start: 20171109
  3. DAFIRO HCT [Concomitant]
     Active Substance: AMLODIPINE\HYDROCHLOROTHIAZIDE\VALSARTAN
     Indication: HYPERTENSION
     Route: 048
     Dates: start: 2014
  4. METOPROLOL. [Concomitant]
     Active Substance: METOPROLOL
     Indication: HYPERTENSION
     Route: 048
     Dates: start: 20000610
  5. SIMVABETA [Concomitant]
     Active Substance: SIMVASTATIN
     Indication: DYSLIPIDAEMIA
     Route: 048
     Dates: start: 20000610
  6. PANTOPRAZOL [Concomitant]
     Active Substance: PANTOPRAZOLE SODIUM
     Indication: DYSPEPSIA
     Route: 048
     Dates: start: 20171123
  7. BLINDED ATEZOLIZUMAB [Suspect]
     Active Substance: ATEZOLIZUMAB
     Indication: MALIGNANT MELANOMA
     Dosage: ON 06/DEC/2017, THE PATIENT RECEIVED MOST RECENT DOSE OF BLINDED ATEZOLIZUMAB.
     Route: 042
     Dates: start: 20171206
  8. GODAMED [Concomitant]
     Active Substance: ASPIRIN
     Indication: MYOCARDIAL INFARCTION
     Route: 048
     Dates: start: 20000610

REACTIONS (1)
  - Tubulointerstitial nephritis [Recovered/Resolved]

NARRATIVE: CASE EVENT DATE: 20171220
